FAERS Safety Report 19278197 (Version 1)
Quarter: 2021Q2

REPORT INFORMATION
  Report Type: Spontaneous
  Country: US (occurrence: US)
  Receive Date: 20210519
  Receipt Date: 20210519
  Transmission Date: 20210717
  Serious: Yes (Other)
  Sender: FDA-Public Use
  Company Number: None

PATIENT
  Sex: Male
  Weight: 122.6 kg

DRUGS (1)
  1. DIVALPROEX SODIUM XR 500 [Suspect]
     Active Substance: DIVALPROEX SODIUM
     Indication: EPILEPSY
     Dates: start: 2006, end: 2011

REACTIONS (2)
  - Product substitution issue [None]
  - Seizure [None]
